FAERS Safety Report 20623736 (Version 1)
Quarter: 2022Q1

REPORT INFORMATION
  Report Type: Spontaneous
  Country: US (occurrence: US)
  Receive Date: 20220322
  Receipt Date: 20220322
  Transmission Date: 20220423
  Serious: Yes (Hospitalization, Other)
  Sender: FDA-Public Use
  Company Number: US-009507513-2203USA003923

PATIENT
  Age: 55 Year
  Sex: Female
  Weight: 71.2 kg

DRUGS (4)
  1. KEYTRUDA [Suspect]
     Active Substance: PEMBROLIZUMAB
     Indication: Neoplasm
     Dosage: 200 MILLIGRAM, ONCE IN EVERY THREE WEEKS (Q3W) (ALSO REPROTED AS 3W)
     Route: 042
     Dates: start: 202201, end: 2022
  2. KEYTRUDA [Suspect]
     Active Substance: PEMBROLIZUMAB
     Dosage: 200 MILLIGRAM, ONCE IN EVERY THREE WEEKS (Q3W) (ALSO REPROTED AS 3W)
     Route: 042
     Dates: start: 20220216, end: 20220216
  3. CEBPA-51 FREE ACID [Suspect]
     Active Substance: CEBPA-51 FREE ACID
     Indication: Neoplasm
     Dosage: 240 MILLIGRAM, ONCE IN A WEEK (QW) (ALSO REPORTED AS QOW)
     Route: 042
     Dates: start: 202201, end: 2022
  4. CEBPA-51 FREE ACID [Suspect]
     Active Substance: CEBPA-51 FREE ACID
     Dosage: 240 MILLIGRAM, ONCE IN A WEEK (QW) (ALSO REPORTED AS QOW)
     Route: 042
     Dates: start: 20220208, end: 20220208

REACTIONS (1)
  - Hemiparesis [Unknown]

NARRATIVE: CASE EVENT DATE: 20220222
